FAERS Safety Report 5232758-6 (Version None)
Quarter: 2007Q1

REPORT INFORMATION
  Report Type: 
  Country: None (occurrence: None)
  Receive Date: 20070206
  Receipt Date: 20070206
  Transmission Date: 20070707
  Serious: Yes (Other)
  Sender: FDA-Public Use
  Company Number: None

PATIENT
  Age: 33 Year
  Sex: Female
  Weight: 52.1637 kg

DRUGS (2)
  1. TANNATE 12 S SUSPENSION HI-TECH PHARMACAL CO/ TARGET [Suspect]
     Indication: BRONCHITIS
     Dosage: ONE TEASPOON   1 TIME  PO  (DURATION:  USED ONE TIME)
     Route: 048
     Dates: start: 20070127, end: 20070127
  2. TANNATE 12 S SUSPENSION HI-TECH PHARMACAL CO/ TARGET [Suspect]
     Indication: COUGH
     Dosage: ONE TEASPOON   1 TIME  PO  (DURATION:  USED ONE TIME)
     Route: 048
     Dates: start: 20070127, end: 20070127

REACTIONS (2)
  - DRUG INEFFECTIVE [None]
  - HEADACHE [None]
